FAERS Safety Report 8846587 (Version 1)
Quarter: 2012Q4

REPORT INFORMATION
  Report Type: 
  Country: NZ (occurrence: NZ)
  Receive Date: 20121017
  Receipt Date: 20121017
  Transmission Date: 20130627
  Serious: Yes (Hospitalization)
  Sender: FDA-Public Use
  Company Number: NZ-B.I. PHARMACEUTICALS,INC./RIDGEFIELD-2012-AU-01728AU

PATIENT
  Age: 81 Year
  Sex: Female
  Weight: 46 kg

DRUGS (11)
  1. PRADAXA [Suspect]
     Indication: ATRIAL FIBRILLATION
     Dosage: 220 mg
     Dates: start: 20120113, end: 20120925
  2. DIGOXIN [Concomitant]
  3. NA VALPROATE [Concomitant]
  4. FOSAMAX [Concomitant]
  5. OMEPRAZOLE [Concomitant]
  6. FRUSEMIDE [Concomitant]
  7. THIAMINE [Concomitant]
  8. SPIRONOLACTONE [Concomitant]
  9. SALAZOPYRIN [Concomitant]
  10. DILTIAZEM [Concomitant]
  11. TRAMADOL [Concomitant]

REACTIONS (3)
  - Cardiac failure congestive [Recovered/Resolved]
  - Haemoglobin decreased [Recovered/Resolved]
  - Anaemia [Unknown]
